FAERS Safety Report 21650628 (Version 1)
Quarter: 2022Q4

REPORT INFORMATION
  Report Type: Report from Study
  Country: US (occurrence: US)
  Receive Date: 20221128
  Receipt Date: 20221128
  Transmission Date: 20230112
  Serious: No
  Sender: FDA-Public Use
  Company Number: US-ABBVIE-4163759

PATIENT
  Sex: Female

DRUGS (3)
  1. HUMIRA [Suspect]
     Active Substance: ADALIMUMAB
     Indication: Rheumatoid arthritis
     Dosage: CITRATE FREE
     Route: 058
  2. Pfizer/BioNTech [Concomitant]
     Indication: COVID-19 immunisation
     Dosage: COVID VACCINE
     Route: 030
  3. Pfizer/BioNTech [Concomitant]
     Indication: COVID-19 immunisation
     Dosage: COVID BOOSTER VACCINE
     Route: 030

REACTIONS (2)
  - Arthralgia [Not Recovered/Not Resolved]
  - Pain in extremity [Not Recovered/Not Resolved]
